FAERS Safety Report 6025747-5 (Version None)
Quarter: 2009Q1

REPORT INFORMATION
  Report Type: 
  Country: None (occurrence: None)
  Receive Date: 20090102
  Receipt Date: 20081223
  Transmission Date: 20090719
  Serious: Yes (Disabling, Other)
  Sender: FDA-Public Use
  Company Number: GB-BAXTER-2008BH012683

PATIENT
  Age: 57 Year
  Sex: Male

DRUGS (3)
  1. CYCLOPHOSPHAMIDE [Suspect]
     Indication: VASCULITIS
     Route: 048
     Dates: start: 20000101
  2. AZATHIOPRINE [Concomitant]
  3. PREDNISOLONE [Concomitant]
     Indication: VASCULITIS
     Route: 048
     Dates: start: 20000101

REACTIONS (1)
  - TESTICULAR FAILURE [None]
